FAERS Safety Report 4972675-X (Version None)
Quarter: 2006Q1

REPORT INFORMATION
  Report Type: 
  Country: None (occurrence: None)
  Receive Date: 20060216
  Receipt Date: 20060216
  Transmission Date: 20060701
  Serious: Yes (Hospitalization)
  Sender: FDA-Public Use
  Company Number: 2003IM000636

PATIENT
  Age: 77 Year
  Sex: Female
  Weight: 102.0593 kg

DRUGS (11)
  1. INTERFERON GAMMA-1B [Suspect]
     Indication: OVARIAN CANCER
     Dosage: 100 UG, TIW, SUBCUTANEOUS
     Route: 058
     Dates: start: 20030331, end: 20030616
  2. CRBOPLATIN [Concomitant]
  3. PACLITAXEL [Concomitant]
  4. COLACE [Concomitant]
  5. COMPAZINE [Concomitant]
  6. K-DUR 10 [Concomitant]
  7. NAPROSYN [Concomitant]
  8. PROCRIT [Concomitant]
  9. COUMADIN [Concomitant]
  10. METOPROLOL [Concomitant]
  11. LORTAB [Concomitant]

REACTIONS (1)
  - PYREXIA [None]
